FAERS Safety Report 9580349 (Version 1)
Quarter: 2013Q4

REPORT INFORMATION
  Report Type: Report from Study
  Country: NO (occurrence: NO)
  Receive Date: 20131002
  Receipt Date: 20131002
  Transmission Date: 20140711
  Serious: Yes (Disabling)
  Sender: FDA-Public Use
  Company Number: PHHY2013NO106000

PATIENT
  Sex: 0

DRUGS (2)
  1. LEVETIRACETAM [Suspect]
     Indication: EPILEPSY
     Dosage: MATERNAL DOSE-1000 (UNITS NOT SPECIFIED)
     Route: 064
  2. LEVETIRACETAM [Suspect]
     Route: 064

REACTIONS (2)
  - Deafness [Unknown]
  - Foetal exposure during pregnancy [Recovered/Resolved]
